FAERS Safety Report 13987892 (Version 2)
Quarter: 2017Q3

REPORT INFORMATION
  Report Type: Spontaneous
  Country: US (occurrence: US)
  Receive Date: 20170919
  Receipt Date: 20170922
  Transmission Date: 20171128
  Serious: No
  Sender: FDA-Public Use
  Company Number: US-PFIZER INC-2017400321

PATIENT
  Age: 59 Year
  Sex: Female
  Weight: 63.5 kg

DRUGS (2)
  1. ARTHROTEC [Suspect]
     Active Substance: DICLOFENAC SODIUM\MISOPROSTOL
     Indication: OSTEOARTHRITIS
  2. ARTHROTEC [Suspect]
     Active Substance: DICLOFENAC SODIUM\MISOPROSTOL
     Indication: ARTHRITIS
     Dosage: 1 DF, DAILY [DICLOFENAC SODIUM-75MG/MISOPROSTOL-200MCG] (TAKES 1 A DAY)

REACTIONS (3)
  - Intentional product misuse [Unknown]
  - Drug dose omission [Unknown]
  - Incorrect drug administration duration [Unknown]
